FAERS Safety Report 8758590 (Version 3)
Quarter: 2013Q1

REPORT INFORMATION
  Report Type: Spontaneous
  Country: US (occurrence: US)
  Receive Date: 20120829
  Receipt Date: 20130308
  Transmission Date: 20140127
  Serious: No
  Sender: FDA-Public Use
  Company Number: US-BAYER-2012-089111

PATIENT
  Age: 18 Year
  Sex: Male
  Weight: 59 kg

DRUGS (2)
  1. ALEVE CAPLET/TABLET,MIDOL EXTENDED RELIEF CAPLET [Suspect]
     Indication: HEADACHE
     Dosage: 1 DF, PRN
     Route: 048
     Dates: start: 201206, end: 201208
  2. IBUPROFEN [Concomitant]
     Dosage: UNK

REACTIONS (6)
  - Impatience [None]
  - Anxiety [None]
  - Ejaculation failure [None]
  - Erectile dysfunction [None]
  - Incorrect dose administered [None]
  - Pruritus generalised [None]
